FAERS Safety Report 17675781 (Version 2)
Quarter: 2020Q2

REPORT INFORMATION
  Report Type: Report from Study
  Country: CO (occurrence: CO)
  Receive Date: 20200416
  Receipt Date: 20200602
  Transmission Date: 20200714
  Serious: Yes (Other)
  Sender: FDA-Public Use
  Company Number: NVSC2020CO074296

PATIENT
  Age: 33 Year
  Sex: Female

DRUGS (2)
  1. REVOLADE [Suspect]
     Active Substance: ELTROMBOPAG
     Indication: IMMUNE THROMBOCYTOPENIA
     Dosage: 50 MG, QD
     Route: 048
     Dates: start: 20200221
  2. REVOLADE [Suspect]
     Active Substance: ELTROMBOPAG
     Dosage: 25 MG, QD
     Route: 048
     Dates: start: 20200222

REACTIONS (17)
  - Thrombosis [Unknown]
  - Apathy [Unknown]
  - Diarrhoea [Unknown]
  - Asthenia [Unknown]
  - Pain in extremity [Unknown]
  - Pain [Unknown]
  - Feeling abnormal [Unknown]
  - Peripheral swelling [Unknown]
  - Erythema [Unknown]
  - Arthralgia [Unknown]
  - Cough [Unknown]
  - Petechiae [Unknown]
  - Myalgia [Unknown]
  - Choking [Unknown]
  - Dyspnoea [Unknown]
  - Cough [Unknown]
  - Gait disturbance [Unknown]

NARRATIVE: CASE EVENT DATE: 20200222
